FAERS Safety Report 23800938 (Version 2)
Quarter: 2024Q2

REPORT INFORMATION
  Report Type: Spontaneous
  Country: US (occurrence: US)
  Receive Date: 20240430
  Receipt Date: 20240617
  Transmission Date: 20240715
  Serious: Yes (Other)
  Sender: FDA-Public Use
  Company Number: US-LANTHEUS-LMI-2024-00512

PATIENT
  Age: 48 Year
  Sex: Female

DRUGS (1)
  1. DEFINITY [Suspect]
     Active Substance: PERFLUTREN
     Indication: Echocardiogram
     Dosage: 3 MILLILITRE (1.3 ML DEFINITY WAS PREPARED IN AN UNKNOWN QUANTITY OF DILUENT)
     Route: 042
     Dates: start: 20240424, end: 20240424

REACTIONS (4)
  - Laryngeal oedema [Recovered/Resolved]
  - Pharyngeal paraesthesia [Recovered/Resolved]
  - Erythema [Recovered/Resolved]
  - Dyspnoea [Recovered/Resolved]

NARRATIVE: CASE EVENT DATE: 20240424
